FAERS Safety Report 9072332 (Version 1)
Quarter: 2013Q1

REPORT INFORMATION
  Report Type: Report from Study
  Country: US (occurrence: US)
  Receive Date: 20130129
  Receipt Date: 20130129
  Transmission Date: 20140127
  Serious: No
  Sender: FDA-Public Use
  Company Number: US-ABBOTT-12P-163-0920643-00

PATIENT
  Age: 67 Year
  Sex: Female

DRUGS (13)
  1. HUMIRA 40 MG/0.8 ML PEN [Suspect]
     Indication: PSORIATIC ARTHROPATHY
     Dates: start: 201108
  2. ADVAIR [Concomitant]
     Indication: ASTHMA
     Dosage: 250/50 DAILY
  3. ALBUTEROL [Concomitant]
     Indication: ASTHMA
  4. AMLODIPINE [Concomitant]
     Indication: HYPERTENSION
     Dosage: 5 MG DAILY
  5. CYMBALTA [Concomitant]
     Indication: FIBROMYALGIA
     Dosage: 40 MG DAILY
  6. CYCLOBENZAPRINE [Concomitant]
     Indication: RHEUMATOID ARTHRITIS
     Dosage: 10 MG DAILY
  7. METHOTREXATE [Concomitant]
     Indication: RHEUMATOID ARTHRITIS
     Dosage: 8 WEEKLY
  8. METHOTREXATE [Concomitant]
     Indication: FIBROMYALGIA
     Dosage: 8 PILLS WEEKLY
  9. SULFAZINE [Concomitant]
     Indication: RHEUMATOID ARTHRITIS
     Dosage: 300 MG DAILY
  10. SULFAZINE [Concomitant]
     Indication: FIBROMYALGIA
  11. OMEPRAZOLE [Concomitant]
     Indication: GASTRITIS EROSIVE
     Dosage: 40 MG DAILY
  12. JANUVIA [Concomitant]
     Indication: GLUCOSE TOLERANCE IMPAIRED
  13. ZETIA [Concomitant]
     Indication: BLOOD CHOLESTEROL INCREASED
     Dosage: 10 MG DAILY

REACTIONS (2)
  - Blood cholesterol increased [Not Recovered/Not Resolved]
  - Pain in extremity [Not Recovered/Not Resolved]
